FAERS Safety Report 8878126 (Version 1)
Quarter: 2012Q4

REPORT INFORMATION
  Report Type: 
  Country: US (occurrence: US)
  Receive Date: 20121025
  Receipt Date: 20121025
  Transmission Date: 20130627
  Serious: No
  Sender: FDA-Public Use
  Company Number: US-AMGEN-USASP2012021479

PATIENT
  Age: 46 Year
  Sex: Female

DRUGS (4)
  1. ENBREL [Suspect]
     Indication: RHEUMATOID ARTHRITIS
     Dosage: 50 mg, qwk
     Dates: start: 20020310
  2. HYDROXYCHLOROQUINE [Concomitant]
     Dosage: 1 mg, bid
     Dates: start: 2002
  3. AZULFIDINE [Concomitant]
     Dosage: 1 mg, UNK
     Dates: start: 2008
  4. HUMIRA [Concomitant]
     Dosage: UNK
     Dates: start: 2005

REACTIONS (3)
  - Rheumatoid arthritis [Unknown]
  - Drug ineffective [Unknown]
  - Injection site pain [Not Recovered/Not Resolved]
